FAERS Safety Report 9106247 (Version 1)
Quarter: 2013Q1

REPORT INFORMATION
  Report Type: Report from Study
  Country: US (occurrence: US)
  Receive Date: 20130220
  Receipt Date: 20130220
  Transmission Date: 20140127
  Serious: Yes (Other)
  Sender: FDA-Public Use
  Company Number: US-BAYER-2013-021595

PATIENT
  Age: 39 Year
  Sex: Female

DRUGS (1)
  1. BETASERON [Suspect]
     Indication: MULTIPLE SCLEROSIS
     Dosage: 8 MIU, EVERY OTHER DAY
     Route: 058
     Dates: start: 20120810, end: 20130128

REACTIONS (5)
  - Malaise [Recovered/Resolved]
  - Vomiting [Recovered/Resolved]
  - Gastritis [Recovered/Resolved]
  - Throat lesion [Recovered/Resolved]
  - Gastric ulcer [Recovered/Resolved]
